FAERS Safety Report 8444908-9 (Version None)
Quarter: 2012Q2

REPORT INFORMATION
  Report Type: 
  Country: None (occurrence: None)
  Receive Date: 20120618
  Receipt Date: 20120613
  Transmission Date: 20120825
  Serious: Yes (Other)
  Sender: FDA-Public Use
  Company Number: BE-BAYER-2012-057702

PATIENT
  Age: 57 Year
  Sex: Male

DRUGS (8)
  1. ATACAND [Concomitant]
  2. MOXIFLOXACIN [Suspect]
     Indication: SINUSITIS
     Dosage: 400 MG, QD
     Route: 048
     Dates: start: 20120604, end: 20120605
  3. NOBITEN [Concomitant]
  4. PANTOPRAZOLE [Concomitant]
  5. ALLOPURINOL [Concomitant]
  6. METFORMIN HCL [Concomitant]
     Dosage: 850 MG, BID
  7. CARDIOASPIRINE [Concomitant]
  8. EZETIMIBE [Concomitant]

REACTIONS (4)
  - DYSPNOEA [None]
  - PERIPHERAL COLDNESS [None]
  - TACHYCARDIA [None]
  - CARDIAC FAILURE [None]
